FAERS Safety Report 22160833 (Version 1)
Quarter: 2023Q1

REPORT INFORMATION
  Report Type: Spontaneous
  Country: CN (occurrence: None)
  Receive Date: 20230331
  Receipt Date: 20230331
  Transmission Date: 20230418
  Serious: Yes (Life-Threatening, Other)
  Sender: FDA-Public Use
  Company Number: CN-ROCHE-3319565

PATIENT
  Age: 57 Year
  Sex: Female

DRUGS (14)
  1. HERCEPTIN [Suspect]
     Active Substance: TRASTUZUMAB
     Indication: Breast cancer
     Dosage: 6 CYCLES
     Route: 065
     Dates: start: 20200924
  2. HERCEPTIN [Suspect]
     Active Substance: TRASTUZUMAB
     Dosage: TRASTUZUMAB AND PERTUZUMAB FOR 1 YEAR
     Route: 065
     Dates: end: 202108
  3. HERCEPTIN [Suspect]
     Active Substance: TRASTUZUMAB
     Route: 065
     Dates: start: 20221021
  4. PERJETA [Suspect]
     Active Substance: PERTUZUMAB
     Indication: Breast cancer
     Dosage: 6 CYCLES
     Route: 065
     Dates: start: 20200924
  5. PERJETA [Suspect]
     Active Substance: PERTUZUMAB
     Dosage: TRASTUZUMAB AND PERTUZUMAB FOR 1 YEAR
     Route: 065
     Dates: end: 202108
  6. PERJETA [Suspect]
     Active Substance: PERTUZUMAB
     Route: 065
     Dates: start: 20221021
  7. KADCYLA [Suspect]
     Active Substance: ADO-TRASTUZUMAB EMTANSINE
     Indication: Breast cancer
     Dosage: 4 CYCLES
     Route: 065
     Dates: start: 20221116
  8. DOCETAXEL [Concomitant]
     Active Substance: DOCETAXEL
     Dosage: 6 CYCLES
     Dates: start: 20200924
  9. PACLITAXEL [Concomitant]
     Active Substance: PACLITAXEL
     Dosage: PACLITAXEL (ALBUMIN BOUND)
     Dates: start: 20220527, end: 20220728
  10. PYROTINIB [Concomitant]
     Active Substance: PYROTINIB
     Dates: start: 20220527, end: 20220728
  11. PYROTINIB [Concomitant]
     Active Substance: PYROTINIB
     Dosage: 2 CYCLES
     Dates: start: 20220928
  12. DISITAMAB VEDOTIN [Concomitant]
     Active Substance: DISITAMAB VEDOTIN
     Dosage: 2 CYCLES
     Dates: start: 20220928
  13. ERIBULIN [Concomitant]
     Active Substance: ERIBULIN
     Dates: start: 20221021
  14. CARBOPLATIN [Concomitant]
     Active Substance: CARBOPLATIN
     Dosage: 6 CYCLES
     Dates: start: 20200924

REACTIONS (10)
  - Diarrhoea [Unknown]
  - Neuropathy peripheral [Unknown]
  - Pneumonitis [Unknown]
  - Myelosuppression [Unknown]
  - Hyperglycaemia [Unknown]
  - Epilepsy [Unknown]
  - Febrile neutropenia [Unknown]
  - Metabolic acidosis [Unknown]
  - Electrolyte imbalance [Unknown]
  - Platelet count decreased [Unknown]
